FAERS Safety Report 11742877 (Version 2)
Quarter: 2015Q4

REPORT INFORMATION
  Report Type: Report from Study
  Country: ES (occurrence: ES)
  Receive Date: 20151116
  Receipt Date: 20151213
  Transmission Date: 20160304
  Serious: Yes (Other)
  Sender: FDA-Public Use
  Company Number: ES-ELI_LILLY_AND_COMPANY-ES201510004040

PATIENT
  Age: 48 Year
  Sex: Male

DRUGS (5)
  1. RANITIDINE [Concomitant]
     Active Substance: RANITIDINE\RANITIDINE HYDROCHLORIDE
     Dosage: 150 MG, BID
     Route: 065
  2. OMEPRAZOL                          /00661201/ [Concomitant]
     Active Substance: OMEPRAZOLE
     Dosage: 20 MG, QD
     Route: 065
  3. TAXOL [Suspect]
     Active Substance: PACLITAXEL
     Dosage: UNK, CYCLICAL
     Route: 065
     Dates: end: 20151006
  4. CYRAMZA [Suspect]
     Active Substance: RAMUCIRUMAB
     Indication: PRODUCT USED FOR UNKNOWN INDICATION
     Dosage: UNK UNK, CYCLICAL
     Route: 065
     Dates: end: 20151006
  5. METAMIZOLE [Concomitant]
     Active Substance: METAMIZOLE
     Dosage: UNK, EVERY 8 HRS
     Route: 065

REACTIONS (3)
  - Gastric fistula [Unknown]
  - Malignant neoplasm progression [Unknown]
  - Gastric perforation [Unknown]
